FAERS Safety Report 10173552 (Version 1)
Quarter: 2014Q2

REPORT INFORMATION
  Report Type: Spontaneous
  Country: US (occurrence: US)
  Receive Date: 20140515
  Receipt Date: 20140515
  Transmission Date: 20141212
  Serious: No
  Sender: FDA-Public Use
  Company Number: US-PFIZER INC-2014132483

PATIENT
  Age: 67 Year
  Sex: Female
  Weight: 71.7 kg

DRUGS (8)
  1. CHANTIX [Suspect]
     Indication: SMOKING CESSATION THERAPY
     Dosage: 0.5 MG, 1X/DAY
     Route: 048
     Dates: start: 201402, end: 2014
  2. CHANTIX [Suspect]
     Dosage: 1 MG, 2X/DAY
     Route: 048
     Dates: start: 2014
  3. RISPERDAL [Concomitant]
     Dosage: UNK
  4. TRAZODONE [Concomitant]
     Dosage: UNK
  5. LINZESS [Concomitant]
     Indication: IRRITABLE BOWEL SYNDROME
     Dosage: UNK
  6. FUROSEMIDE [Concomitant]
     Dosage: UNK
  7. ZANAFLEX [Concomitant]
     Indication: MUSCLE RELAXANT THERAPY
     Dosage: UNK
  8. BUPROPIONE [Concomitant]
     Indication: DEPRESSION
     Dosage: UNK

REACTIONS (3)
  - Influenza [Recovering/Resolving]
  - Skin exfoliation [Not Recovered/Not Resolved]
  - Dyspnoea [Unknown]
